FAERS Safety Report 14098123 (Version 1)
Quarter: 2017Q4

REPORT INFORMATION
  Report Type: Spontaneous
  Country: US (occurrence: US)
  Receive Date: 20171016
  Receipt Date: 20171016
  Transmission Date: 20180321
  Serious: No
  Sender: FDA-Public Use
  Company Number: US-AMGEN-USASP2017010323

PATIENT
  Age: 80 Year
  Sex: Female
  Weight: 55.79 kg

DRUGS (17)
  1. LATANOPROST. [Concomitant]
     Active Substance: LATANOPROST
     Dosage: 0.005 %, QD
     Route: 047
  2. TOLTERODINE TARTRATE. [Concomitant]
     Active Substance: TOLTERODINE TARTRATE
     Dosage: 4 MG, QD
     Route: 048
  3. PROLIA [Suspect]
     Active Substance: DENOSUMAB
     Indication: OSTEOPOROSIS POSTMENOPAUSAL
     Dosage: 60 MG/ML, Q6MO
     Route: 058
     Dates: start: 20160405
  4. AZELASTINE HCL [Concomitant]
     Active Substance: AZELASTINE HYDROCHLORIDE
     Dosage: 137 MUG, BID
     Route: 045
  5. MYRBETRIQ [Concomitant]
     Active Substance: MIRABEGRON
     Dosage: 25 MG, QD
  6. DULERA [Concomitant]
     Active Substance: FORMOTEROL FUMARATE DIHYDRATE\MOMETASONE FUROATE
     Dosage: 100-5 MUG, BID
     Route: 045
  7. GABAPENTIN. [Concomitant]
     Active Substance: GABAPENTIN
     Dosage: 300 MG, TID
     Route: 048
  8. COREG [Concomitant]
     Active Substance: CARVEDILOL
     Dosage: 25 MG, BID
     Route: 048
  9. MELOXICAM. [Concomitant]
     Active Substance: MELOXICAM
     Dosage: 15 MG, QD
     Route: 048
  10. XOPENEX HFA [Concomitant]
     Active Substance: LEVALBUTEROL TARTRATE
     Dosage: 45 MUG, AS NECESSARY
  11. MIRTAZAPINE. [Concomitant]
     Active Substance: MIRTAZAPINE
     Dosage: 7.5 UNK, QHS
     Route: 048
  12. CITRACAL MAXIMUM [Concomitant]
     Active Substance: CALCIUM CITRATE\CHOLECALCIFEROL
     Dosage: 315-250 MG, BID
     Route: 048
  13. VANIQA [Concomitant]
     Active Substance: EFLORNITHINE HYDROCHLORIDE
     Dosage: 13.9 %, BID
  14. TRIAMCINOLONE ACETONIDE. [Concomitant]
     Active Substance: TRIAMCINOLONE ACETONIDE
     Dosage: 0.1 %, BID
  15. HYDROMET [Concomitant]
     Active Substance: HOMATROPINE METHYLBROMIDE\HYDROCODONE BITARTRATE
     Dosage: 1.5-5 MG/5 ML, AS NECESSARY
     Route: 048
  16. PREDNISONE. [Concomitant]
     Active Substance: PREDNISONE
     Indication: RESPIRATION ABNORMAL
     Dosage: UNK, AS NECESSARY
  17. CALCIUM CARBONATE. [Concomitant]
     Active Substance: CALCIUM CARBONATE
     Dosage: 1/2 TABLET, BID
     Route: 048

REACTIONS (2)
  - Dermatitis atopic [Not Recovered/Not Resolved]
  - Fall [Unknown]
